FAERS Safety Report 13238752 (Version 1)
Quarter: 2017Q1

REPORT INFORMATION
  Report Type: Spontaneous
  Country: US (occurrence: US)
  Receive Date: 20170216
  Receipt Date: 20170216
  Transmission Date: 20170428
  Serious: Yes (Other)
  Sender: FDA-Public Use
  Company Number: US-MEDIMMUNE-MEDI-0004476

PATIENT
  Age: 21 Year
  Sex: Male
  Weight: 73 kg

DRUGS (9)
  1. MELPHALAN [Concomitant]
     Active Substance: MELPHALAN
     Dosage: UNK UNK
     Route: 065
     Dates: start: 20060321, end: 20060322
  2. HEPARIN [Concomitant]
     Active Substance: HEPARIN SODIUM
     Dosage: UNK UNK
     Route: 065
  3. STARLIX [Concomitant]
     Active Substance: NATEGLINIDE
     Dosage: UNK UNK
     Route: 065
  4. ETHYOL [Suspect]
     Active Substance: AMIFOSTINE
     Indication: CHEMOTHERAPY
     Dosage: UNK
     Dates: start: 20060321, end: 20060321
  5. ZANTAC [Concomitant]
     Active Substance: RANITIDINE HYDROCHLORIDE
     Dosage: UNK UNK
     Route: 065
  6. GLUTAMINE [Concomitant]
     Active Substance: GLUTAMINE
     Dosage: UNK UNK
     Route: 065
  7. MAGNESIUM [Concomitant]
     Active Substance: MAGNESIUM
     Dosage: UNK UNK
     Route: 065
  8. ZOFRAN [Concomitant]
     Active Substance: ONDANSETRON HYDROCHLORIDE
     Dosage: UNK UNK
     Route: 065
  9. PENTAMIDINE [Concomitant]
     Active Substance: PENTAMIDINE
     Dosage: UNK UNK
     Route: 065

REACTIONS (5)
  - Tremor [Recovered/Resolved]
  - Pallor [Recovered/Resolved]
  - Loss of consciousness [Recovered/Resolved]
  - Hyperhidrosis [Recovered/Resolved]
  - Hypotension [Recovered/Resolved]

NARRATIVE: CASE EVENT DATE: 20060321
